FAERS Safety Report 22318741 (Version 2)
Quarter: 2023Q2

REPORT INFORMATION
  Report Type: Report from Study
  Country: AR (occurrence: AR)
  Receive Date: 20230515
  Receipt Date: 20230526
  Transmission Date: 20230722
  Serious: Yes (Hospitalization, Other)
  Sender: FDA-Public Use
  Company Number: AR-002147023-NVSC2022AR264399

PATIENT
  Age: 61 Year
  Sex: Female

DRUGS (6)
  1. KISQALI [Suspect]
     Active Substance: RIBOCICLIB
     Indication: Breast cancer metastatic
     Dosage: 200 MG, TID
     Route: 048
     Dates: start: 20201014
  2. KISQALI [Suspect]
     Active Substance: RIBOCICLIB
     Dosage: 600 MG, QD
     Route: 048
     Dates: start: 20201015, end: 20230308
  3. KISQALI [Suspect]
     Active Substance: RIBOCICLIB
     Dosage: UNK (THREE MONTHS  AGO)
     Route: 065
  4. FULVESTRANT [Suspect]
     Active Substance: FULVESTRANT
     Indication: Breast cancer
     Dosage: UNK
     Route: 065
  5. EVEROLIMUS [Suspect]
     Active Substance: EVEROLIMUS
     Indication: Product used for unknown indication
     Dosage: UNK (TWO WEEKS AGO)
     Route: 065
  6. EXEMESTANE [Suspect]
     Active Substance: EXEMESTANE
     Indication: Product used for unknown indication
     Dosage: UNK (TWO WEEKS AGO)
     Route: 065

REACTIONS (18)
  - Back pain [Unknown]
  - Metastases to liver [Unknown]
  - Metastases to adrenals [Unknown]
  - Perforation [Unknown]
  - Breast cancer recurrent [Unknown]
  - Hepatic neoplasm [Unknown]
  - Fall [Unknown]
  - Bone disorder [Unknown]
  - Musculoskeletal chest pain [Unknown]
  - Nodule [Unknown]
  - Tendon disorder [Unknown]
  - Pain [Unknown]
  - Malaise [Unknown]
  - Pyrexia [Unknown]
  - Drug ineffective [Unknown]
  - Neoplasm [Unknown]
  - Inflammation [Unknown]
  - Inappropriate schedule of product administration [Unknown]

NARRATIVE: CASE EVENT DATE: 20201014
